FAERS Safety Report 8531207-X (Version None)
Quarter: 2012Q3

REPORT INFORMATION
  Report Type: 
  Country: None (occurrence: None)
  Receive Date: 20120723
  Receipt Date: 20120714
  Transmission Date: 20120928
  Serious: Yes (Other)
  Sender: FDA-Public Use
  Company Number: DE-ELI_LILLY_AND_COMPANY-AT201207002248

PATIENT
  Age: 70 Year
  Sex: Female
  Weight: 63 kg

DRUGS (5)
  1. ASPIRIN [Concomitant]
     Dosage: 100 MG, QD
  2. BISOPROLOL FUMARATE [Concomitant]
     Dosage: 5 MG, UNKNOWN
  3. ATORVASTATIN [Concomitant]
     Dosage: 20 MG, UNKNOWN
  4. EFFIENT [Suspect]
     Indication: ANGINA PECTORIS
     Dosage: 60 MG, UNK
     Dates: start: 20110103, end: 20110103
  5. EFFIENT [Suspect]
     Dosage: 10 MG, QD
     Dates: start: 20110104, end: 20110329

REACTIONS (1)
  - ISCHAEMIC STROKE [None]
